FAERS Safety Report 12137501 (Version 1)
Quarter: 2016Q1

REPORT INFORMATION
  Report Type: Spontaneous
  Country: DE (occurrence: DE)
  Receive Date: 20160302
  Receipt Date: 20160302
  Transmission Date: 20160526
  Serious: Yes (Hospitalization)
  Sender: FDA-Public Use
  Company Number: GXKR2016DE001031

PATIENT

DRUGS (4)
  1. GABAPENTIN. [Suspect]
     Active Substance: GABAPENTIN
     Indication: POST HERPETIC NEURALGIA
     Dosage: DAILY DOSE: 900 MG MILLGRAM(S) EVERY DAYS
     Route: 048
     Dates: start: 20151226, end: 20160105
  2. NOVAMINSULFON [Concomitant]
     Active Substance: METAMIZOLE
     Indication: POST HERPETIC NEURALGIA
     Dosage: DAILY DOSE: 120 GTT DROP(S) EVERY DAYS
     Route: 048
     Dates: start: 20160102
  3. TRAMADOL. [Concomitant]
     Active Substance: TRAMADOL
     Indication: POST HERPETIC NEURALGIA
     Dosage: DAILY DOSE: 80 GTT DROP(S) EVERY DAYS
     Route: 048
     Dates: start: 20151226, end: 20160104
  4. NOVAMINSULFON [Concomitant]
     Active Substance: METAMIZOLE
     Indication: POST HERPETIC NEURALGIA

REACTIONS (6)
  - Dysphagia [Recovering/Resolving]
  - Paraesthesia oral [Recovering/Resolving]
  - Hyperventilation [Recovering/Resolving]
  - Dyspnoea [Recovering/Resolving]
  - Tetany [Recovering/Resolving]
  - Anxiety [Recovering/Resolving]

NARRATIVE: CASE EVENT DATE: 20151227
